FAERS Safety Report 5394009-1 (Version None)
Quarter: 2007Q3

REPORT INFORMATION
  Report Type: 
  Country: None (occurrence: None)
  Receive Date: 20070723
  Receipt Date: 20070109
  Transmission Date: 20080115
  Serious: No
  Sender: FDA-Public Use
  Company Number: A0634927A

PATIENT
  Age: 63 Year
  Sex: Male

DRUGS (6)
  1. AVANDIA [Suspect]
     Dosage: 4MG PER DAY
     Route: 048
     Dates: start: 20061001
  2. METFORMIN HCL [Suspect]
     Dosage: 1000MG TWICE PER DAY
     Route: 048
     Dates: start: 20061001
  3. COUMADIN [Concomitant]
  4. UNKNOWN MEDICATION [Concomitant]
  5. ASPIRIN [Concomitant]
  6. TENORMIN [Concomitant]

REACTIONS (1)
  - BLOOD CHOLESTEROL INCREASED [None]
